FAERS Safety Report 6172365-4 (Version None)
Quarter: 2009Q2

REPORT INFORMATION
  Report Type: 
  Country: None (occurrence: None)
  Receive Date: 20090429
  Receipt Date: 20090420
  Transmission Date: 20091009
  Serious: Yes (Other)
  Sender: FDA-Public Use
  Company Number: PHHY2009BR15262

PATIENT
  Age: 17 Year
  Sex: Female
  Weight: 58 kg

DRUGS (1)
  1. METHERGINE [Suspect]
     Dosage: 0.125 MG, UNK
     Dates: start: 20090301

REACTIONS (3)
  - ABDOMINAL PAIN [None]
  - BACK PAIN [None]
  - MENSTRUATION DELAYED [None]
